FAERS Safety Report 8996934 (Version 1)
Quarter: 2012Q4

REPORT INFORMATION
  Report Type: Spontaneous
  Country: CH (occurrence: None)
  Receive Date: 20121221
  Receipt Date: 20121221
  Transmission Date: 20130627
  Serious: Yes (Hospitalization)
  Sender: FDA-Public Use
  Company Number: JPI-P-026848

PATIENT
  Age: 52 Year
  Sex: Female

DRUGS (5)
  1. XYREM (500 MILLIGRAM/MILLILITERS, SOLUTION) (SODIUM OXYBATE) [Suspect]
     Indication: NOCTURNAL HEADACHE
  2. XYREM (500 MILLIGRAM/MILLILITERS, SOLUTION) (SODIUM OXYBATE) [Suspect]
     Indication: INSOMNIA
  3. XYREM (500 MILLIGRAM/MILLILITERS, SOLUTION) (SODIUM OXYBATE) [Suspect]
     Indication: NOCTURNAL HEADACHE
     Route: 048
  4. XYREM (500 MILLIGRAM/MILLILITERS, SOLUTION) (SODIUM OXYBATE) [Suspect]
     Indication: INSOMNIA
     Route: 048
  5. TOPIRAMATE [Suspect]
     Indication: CLUSTER HEADACHE
     Dosage: 25 mg, taken at 18:00 hours

REACTIONS (7)
  - Coma [None]
  - Cluster headache [None]
  - Myoclonus [None]
  - Confusional state [None]
  - Miosis [None]
  - Drug interaction [None]
  - Condition aggravated [None]
